FAERS Safety Report 4683684-2 (Version None)
Quarter: 2005Q2

REPORT INFORMATION
  Report Type: 
  Country: None (occurrence: None)
  Receive Date: 20050607
  Receipt Date: 20050527
  Transmission Date: 20051028
  Serious: Yes (Hospitalization)
  Sender: FDA-Public Use
  Company Number: 200511825FR

PATIENT
  Age: 84 Year
  Sex: Female
  Weight: 52 kg

DRUGS (6)
  1. SECTRAL [Suspect]
     Route: 048
  2. LOVENOX [Suspect]
     Route: 058
  3. ATARAX [Suspect]
     Dates: start: 20050413
  4. TAGAMET [Suspect]
  5. ELISOR [Suspect]
     Route: 048
  6. PLAVIX [Suspect]
     Route: 048

REACTIONS (3)
  - DERMATITIS BULLOUS [None]
  - FIXED ERUPTION [None]
  - SKIN LESION [None]
